FAERS Safety Report 9270426 (Version 2)
Quarter: 2013Q2

REPORT INFORMATION
  Report Type: Report from Study
  Country: US (occurrence: US)
  Receive Date: 20130503
  Receipt Date: 20130508
  Transmission Date: 20140414
  Serious: Yes (Other)
  Sender: FDA-Public Use
  Company Number: US-ABBOTT-13P-163-1082568-00

PATIENT
  Sex: Male
  Weight: 136.2 kg

DRUGS (3)
  1. HUMIRA [Suspect]
     Indication: PSORIASIS
     Dates: start: 2011, end: 201301
  2. HUMIRA [Suspect]
     Indication: PSORIATIC ARTHROPATHY
  3. METHOTREXATE [Concomitant]
     Indication: PSORIATIC ARTHROPATHY

REACTIONS (11)
  - Osteoarthritis [Recovered/Resolved]
  - Joint lock [Recovered/Resolved]
  - Osteoarthritis [Recovered/Resolved]
  - Joint dislocation [Recovered/Resolved]
  - Infection [Recovered/Resolved]
  - Post procedural complication [Recovered/Resolved]
  - Device related infection [Recovered/Resolved]
  - Wound secretion [Recovered/Resolved]
  - Psoriasis [Not Recovered/Not Resolved]
  - Vitamin D deficiency [Unknown]
  - Pain [Recovered/Resolved]
